FAERS Safety Report 8443050 (Version 2)
Quarter: 2012Q4

REPORT INFORMATION
  Report Type: 
  Country: US (occurrence: US)
  Receive Date: 20120306
  Receipt Date: 20121004
  Transmission Date: 20130627
  Serious: Yes (Hospitalization)
  Sender: FDA-Public Use
  Company Number: US-BAYER-2012-021188

PATIENT
  Age: 39 Year
  Sex: Female
  Weight: 125.17 kg

DRUGS (15)
  1. YASMIN [Suspect]
     Indication: PREMENSTRUAL SYNDROME
     Dosage: UNK
     Dates: start: 20050405, end: 20090316
  2. YASMIN [Suspect]
     Indication: MENORRHAGIA
  3. LEVAQUIN [Concomitant]
     Dosage: UNK
     Dates: start: 20090212
  4. AZITHROMYCIN [Concomitant]
     Dosage: UNK
     Dates: start: 20090120, end: 20090129
  5. PANTOPRAZOLE [Concomitant]
     Dosage: 40 mg, QD
  6. TRIAMTERENE AND HYDROCHLOROTHIAZIDE [Concomitant]
     Indication: HYPERTENSION
     Dosage: 37.5/25
     Dates: start: 20050411, end: 20091115
  7. LEXAPRO [Concomitant]
     Indication: ANXIETY
     Dosage: 20 mg, daily
     Dates: start: 20040606, end: 20110220
  8. NEXIUM [Concomitant]
     Indication: GASTRIC BYPASS
     Dosage: daily
     Dates: start: 20090313, end: 20120316
  9. B12 [Concomitant]
     Dosage: daily
  10. MULTIVITAMINS [Concomitant]
     Dosage: daily
  11. IRON [Concomitant]
     Dosage: daily
  12. ZINC [Concomitant]
     Dosage: daily
  13. PROMETHAZINE [Concomitant]
     Dosage: 25 mg, QD
  14. BIOTIN [Concomitant]
     Dosage: daily
  15. OXYCODONE [Concomitant]
     Dosage: 5 mg, Q 6 hrs.

REACTIONS (8)
  - Pulmonary embolism [None]
  - Thrombophlebitis superficial [None]
  - Pain [None]
  - General physical health deterioration [None]
  - Emotional distress [None]
  - Anxiety [None]
  - Chest pain [None]
  - Musculoskeletal pain [None]
